FAERS Safety Report 4469278-2 (Version None)
Quarter: 2004Q4

REPORT INFORMATION
  Report Type: 
  Country: None (occurrence: None)
  Receive Date: 20041008
  Receipt Date: 20030822
  Transmission Date: 20050328
  Serious: No
  Sender: FDA-Public Use
  Company Number: US-BRISTOL-MYERS SQUIBB COMPANY-12368015

PATIENT
  Sex: Male

DRUGS (2)
  1. AVAPRO [Suspect]
     Dosage: INITIAL DOSAGE FORM: 150MG TABLET
     Route: 048
  2. FLUVASTATIN SODIUM [Concomitant]

REACTIONS (2)
  - JOINT STIFFNESS [None]
  - MUSCULOSKELETAL STIFFNESS [None]
